FAERS Safety Report 8962540 (Version 3)
Quarter: 2013Q3

REPORT INFORMATION
  Report Type: Report from Study
  Country: CA (occurrence: CA)
  Receive Date: 20121214
  Receipt Date: 20130916
  Transmission Date: 20140515
  Serious: Yes (Other)
  Sender: FDA-Public Use
  Company Number: PHHY2011CA097209

PATIENT
  Age: 78 Year
  Sex: Female

DRUGS (3)
  1. ACLASTA [Suspect]
     Indication: OSTEOPOROSIS
     Dosage: 5 MG, ONCE A YEAR
     Route: 042
     Dates: start: 20100908
  2. ACLASTA [Suspect]
     Dosage: 5 MG, ONCE A YEAR
     Route: 042
     Dates: start: 20111122
  3. ANESTHETICS [Concomitant]
     Dosage: UNK UKN, UNK

REACTIONS (6)
  - Fall [Recovered/Resolved]
  - Joint dislocation [Recovered/Resolved]
  - Upper limb fracture [Unknown]
  - Hip fracture [Unknown]
  - Malaise [Unknown]
  - Influenza [Unknown]
